FAERS Safety Report 4832411-4 (Version None)
Quarter: 2005Q4

REPORT INFORMATION
  Report Type: 
  Country: None (occurrence: None)
  Receive Date: 20051121
  Receipt Date: 20051103
  Transmission Date: 20060501
  Serious: Yes (Other)
  Sender: FDA-Public Use
  Company Number: 2005AC01780

PATIENT
  Age: 27637 Day
  Sex: Female
  Weight: 65 kg

DRUGS (6)
  1. FASLODEX [Suspect]
     Indication: BREAST CANCER
     Route: 030
     Dates: start: 20050328, end: 20050901
  2. METOPROLOL [Concomitant]
     Indication: HYPERTENSION
  3. ROSIGLITAZONE [Concomitant]
     Indication: DIABETES MELLITUS
  4. GLICLAZIDE [Concomitant]
     Indication: DIABETES MELLITUS
     Dosage: DOSAGE 2 X 80 (NO UNITS PROVIDED)
  5. PANTOPRAZOLE [Concomitant]
     Indication: DYSPEPSIA
     Dosage: NO UNITS PROVIDED
  6. METHOTREXATE [Concomitant]
     Indication: RHEUMATOID ARTHRITIS

REACTIONS (1)
  - ALOPECIA [None]
